FAERS Safety Report 12136151 (Version 1)
Quarter: 2016Q1

REPORT INFORMATION
  Report Type: Spontaneous
  Country: DE (occurrence: DE)
  Receive Date: 20160302
  Receipt Date: 20160302
  Transmission Date: 20160526
  Serious: Yes (Other)
  Sender: FDA-Public Use
  Company Number: DE-NAPPMUNDI-DEU-2016-0017716

PATIENT
  Sex: Male

DRUGS (2)
  1. OXYGESIC AKUT 10 MG HARTKAPSELN [Suspect]
     Active Substance: OXYCODONE HYDROCHLORIDE
     Indication: PAIN
     Route: 065
  2. OXYGESIC 20 MG [Suspect]
     Active Substance: OXYCODONE HYDROCHLORIDE
     Indication: PAIN
     Route: 065

REACTIONS (3)
  - Tooth loss [Unknown]
  - Teeth brittle [Unknown]
  - Hyperhidrosis [Unknown]
